FAERS Safety Report 23691990 (Version 1)
Quarter: 2024Q2

REPORT INFORMATION
  Report Type: Spontaneous
  Country: JP (occurrence: JP)
  Receive Date: 20240401
  Receipt Date: 20240401
  Transmission Date: 20240717
  Serious: Yes (Death, Hospitalization, Other)
  Sender: FDA-Public Use
  Company Number: JP-BRISTOL-MYERS SQUIBB COMPANY-2024-049000

PATIENT
  Age: 93 Year
  Sex: Female

DRUGS (2)
  1. REVLIMID [Suspect]
     Active Substance: LENALIDOMIDE
     Indication: Product used for unknown indication
     Route: 048
  2. POMALYST [Suspect]
     Active Substance: POMALIDOMIDE
     Indication: Product used for unknown indication
     Route: 048

REACTIONS (2)
  - Hospitalisation [Unknown]
  - Death [Fatal]

NARRATIVE: CASE EVENT DATE: 20230101
